FAERS Safety Report 5834279-6 (Version None)
Quarter: 2008Q3

REPORT INFORMATION
  Report Type: 
  Country: None (occurrence: None)
  Receive Date: 20080805
  Receipt Date: 20080730
  Transmission Date: 20090109
  Serious: Yes (Hospitalization, Other)
  Sender: FDA-Public Use
  Company Number: PHHY2008JP16301

PATIENT
  Age: 30 Year
  Sex: Male

DRUGS (3)
  1. TOFRANIL [Suspect]
     Dosage: 2100 MG, ONCE/SINGLE
     Route: 048
  2. LITHIUM CARBONATE [Suspect]
     Dosage: 36800 MG, ONCE/SINGLE
     Route: 048
  3. AMOXAPINE [Suspect]
     Dosage: 2100 MG, ONCE/SINGLE
     Route: 048

REACTIONS (11)
  - ALTERED STATE OF CONSCIOUSNESS [None]
  - BLOOD PRESSURE INCREASED [None]
  - CONVULSION [None]
  - DIARRHOEA [None]
  - HYPERGLYCAEMIA [None]
  - HYPERPYREXIA [None]
  - HYPERTHYROIDISM [None]
  - INTENTIONAL OVERDOSE [None]
  - RENAL IMPAIRMENT [None]
  - SUICIDE ATTEMPT [None]
  - VENTRICULAR TACHYCARDIA [None]
